FAERS Safety Report 12413431 (Version 1)
Quarter: 2016Q2

REPORT INFORMATION
  Report Type: Spontaneous
  Country: HR (occurrence: HR)
  Receive Date: 20160527
  Receipt Date: 20160527
  Transmission Date: 20160815
  Serious: Yes (Other)
  Sender: FDA-Public Use
  Company Number: PHHY2015HR175681

PATIENT
  Age: 43 Year
  Sex: Male
  Weight: 120 kg

DRUGS (5)
  1. ALOPURINOL [Interacting]
     Active Substance: ALLOPURINOL
     Indication: GOUT
     Dosage: 100 MG, BID
     Route: 048
     Dates: start: 20150219, end: 20150307
  2. PIRAMIL [Concomitant]
     Indication: ESSENTIAL HYPERTENSION
     Dosage: 10 MG, QD
     Route: 048
     Dates: start: 20140424, end: 20150307
  3. HEFEROL [Interacting]
     Active Substance: FERROUS FUMARATE
     Indication: IRON DEFICIENCY ANAEMIA
     Dosage: 350 MG, QD
     Route: 048
     Dates: start: 20150224, end: 20150307
  4. KNAVON [Concomitant]
     Indication: SPINAL PAIN
     Dosage: 100 MG, QD
     Route: 048
     Dates: start: 20141230, end: 20150307
  5. OSPAMOX [Suspect]
     Active Substance: AMOXICILLIN
     Indication: INFLUENZA
     Dosage: 1 G, BID
     Route: 048
     Dates: start: 20150303, end: 20150307

REACTIONS (3)
  - Dyspnoea [Recovered/Resolved]
  - Tongue oedema [Recovered/Resolved]
  - Drug interaction [Recovered/Resolved]

NARRATIVE: CASE EVENT DATE: 20150307
